FAERS Safety Report 5737040-6 (Version None)
Quarter: 2008Q2

REPORT INFORMATION
  Report Type: 
  Country: None (occurrence: None)
  Receive Date: 20080512
  Receipt Date: 20080512
  Transmission Date: 20081010
  Serious: No
  Sender: FDA-Public Use
  Company Number: None

PATIENT
  Age: 30 Year
  Sex: Female
  Weight: 63.5036 kg

DRUGS (1)
  1. CIPROFLOXACIN [Suspect]
     Indication: SKIN BACTERIAL INFECTION
     Dosage: 500 MG 1 EVERY 12 HRS ORAL BEGIN 8PM ON 9 APRIL 2008 END 8AM ON 11 APRIL 2008  * (DUE TO REACTION)
     Route: 048
     Dates: start: 20080409, end: 20080411

REACTIONS (9)
  - DIZZINESS [None]
  - FEELING DRUNK [None]
  - HEADACHE [None]
  - MENTAL IMPAIRMENT [None]
  - MYALGIA [None]
  - NAUSEA [None]
  - PALPITATIONS [None]
  - TEMPERATURE REGULATION DISORDER [None]
  - VISUAL DISTURBANCE [None]
